FAERS Safety Report 7550022-7 (Version None)
Quarter: 2011Q2

REPORT INFORMATION
  Report Type: 
  Country: None (occurrence: None)
  Receive Date: 20110615
  Receipt Date: 20110531
  Transmission Date: 20111010
  Serious: Yes (Hospitalization, Other)
  Sender: FDA-Public Use
  Company Number: US-ACTELION-A-US2011-49327

PATIENT

DRUGS (2)
  1. TRACLEER [Suspect]
     Indication: PULMONARY ARTERIAL HYPERTENSION
     Dosage: UNK
     Route: 048
     Dates: start: 20081003
  2. REVATIO [Concomitant]

REACTIONS (4)
  - ANAEMIA [None]
  - TRANSFUSION [None]
  - BLOOD IRON DECREASED [None]
  - SYNCOPE [None]
